FAERS Safety Report 4617675-4 (Version None)
Quarter: 2005Q1

REPORT INFORMATION
  Report Type: 
  Country: None (occurrence: None)
  Receive Date: 20050322
  Receipt Date: 20050307
  Transmission Date: 20050727
  Serious: Yes (Hospitalization)
  Sender: FDA-Public Use
  Company Number: 2005-DE-00924DE

PATIENT
  Sex: Male

DRUGS (15)
  1. ALNA (TAMSULOSIN) (KAR) (TAMSULOSIN HYDROCHLORIDE) [Suspect]
     Dosage: 0.4 MG (0.4 MG, 0-0-1) PO
     Route: 048
  2. IMUREK (AZATHIOPRINE) (TA) [Concomitant]
  3. NOVODIGAL (DIGOXIN) (TA) [Concomitant]
  4. AQUAPHOR (TA) [Concomitant]
  5. MINIASAL (ACETYLSALICYLIC ACID) (TA) [Concomitant]
  6. NEXIUM MUPS (ESOMEPRAZOLE) (TA) [Concomitant]
  7. DECORTIN (PREDNISONE) (NR) [Concomitant]
  8. PENTASA GRANULATE (GR) [Concomitant]
  9. ACTONEL (RISEDRONATE SODIUM) (NR) [Concomitant]
  10. TROMCARDIN (TROMCARDIN) (NR) [Concomitant]
  11. BELOC-ZOK (METOPROLOL SUCCINATE) (NR) [Concomitant]
  12. NOOTROP (PIRACETAM) (NR) [Concomitant]
  13. CURAZINK (ZINC) (NR) [Concomitant]
  14. FOLSAEURE STADA (NR) [Concomitant]
  15. ASLAN HERRENKAPSELN (KA) [Concomitant]

REACTIONS (3)
  - DRUG HYPERSENSITIVITY [None]
  - OEDEMA PERIPHERAL [None]
  - SWELLING FACE [None]
